FAERS Safety Report 6250508-1 (Version None)
Quarter: 2009Q2

REPORT INFORMATION
  Report Type: 
  Country: None (occurrence: None)
  Receive Date: 20090630
  Receipt Date: 20090622
  Transmission Date: 20091009
  Serious: Yes (Other)
  Sender: FDA-Public Use
  Company Number: US-ROCHE-639689

PATIENT
  Age: 15 Year
  Sex: Female

DRUGS (6)
  1. CEFTRIAXONE SODIUM [Suspect]
     Indication: SEPTIC SHOCK
     Route: 065
  2. HEPARIN [Suspect]
     Indication: THROMBOSIS PROPHYLAXIS
     Route: 065
  3. VANCOMYCIN [Suspect]
     Indication: SEPTIC SHOCK
     Route: 065
  4. CLINDAMYCIN [Suspect]
     Indication: SEPTIC SHOCK
     Route: 065
  5. GENTAMICIN [Suspect]
     Indication: SEPTIC SHOCK
     Route: 065
  6. PENICILLIN G [Suspect]
     Indication: SEPTIC SHOCK
     Route: 065

REACTIONS (7)
  - BETA HAEMOLYTIC STREPTOCOCCAL INFECTION [None]
  - DILATATION VENTRICULAR [None]
  - HEPARIN-INDUCED THROMBOCYTOPENIA [None]
  - MYCOTIC ANEURYSM [None]
  - PITTING OEDEMA [None]
  - PULMONARY VALVE INCOMPETENCE [None]
  - RESPIRATORY DISTRESS [None]
